FAERS Safety Report 9364733 (Version 1)
Quarter: 2013Q2

REPORT INFORMATION
  Report Type: Spontaneous
  Country: US (occurrence: US)
  Receive Date: 20130624
  Receipt Date: 20130624
  Transmission Date: 20140414
  Serious: Yes (Life-Threatening, Hospitalization, Other)
  Sender: FDA-Public Use
  Company Number: US-CELGENEUS-163-21880-13043770

PATIENT
  Age: 66 Year
  Sex: Male

DRUGS (23)
  1. REVLIMID [Suspect]
     Indication: PLASMA CELL MYELOMA
     Dosage: 10 MILLIGRAM
     Route: 048
     Dates: start: 20120130
  2. REVLIMID [Suspect]
     Dosage: 10 MILLIGRAM
     Route: 048
     Dates: start: 20120619
  3. REVLIMID [Suspect]
     Dosage: 5 MILLIGRAM
     Route: 048
     Dates: start: 201207
  4. REVLIMID [Suspect]
     Dosage: 5-10MG ALTERNATING
     Route: 048
     Dates: start: 201303, end: 20130415
  5. LOVENOX [Concomitant]
     Indication: ANTICOAGULANT THERAPY
     Dosage: 120MG / 0.8ML
     Route: 058
  6. LOVENOX [Concomitant]
     Dosage: 2 MILLIGRAM/KILOGRAM
     Route: 058
  7. OXYCODONE HCL [Concomitant]
     Indication: PAIN
     Route: 065
  8. COUMADIN [Concomitant]
     Indication: ANTICOAGULANT THERAPY
     Dosage: 9 MILLIGRAM
     Route: 048
  9. COUMADIN [Concomitant]
     Dosage: 7 MILLIGRAM
     Route: 048
  10. FLOMAX [Concomitant]
     Indication: BENIGN PROSTATIC HYPERPLASIA
     Dosage: .4 MILLIGRAM
     Route: 048
  11. MORPHINE SULFATE [Concomitant]
     Indication: PRODUCT USED FOR UNKNOWN INDICATION
     Dosage: 60 MILLIGRAM
     Route: 048
  12. NEURONTIN [Concomitant]
     Indication: PRODUCT USED FOR UNKNOWN INDICATION
     Dosage: 900 MILLIGRAM
     Route: 048
  13. CALCIUM-VITAMIN D [Concomitant]
     Indication: PRODUCT USED FOR UNKNOWN INDICATION
     Dosage: 600 MG - 400 UNITS
     Route: 048
  14. VITAMIN B COMPLEX [Concomitant]
     Indication: PRODUCT USED FOR UNKNOWN INDICATION
     Dosage: 1 TABLET
     Route: 048
  15. VESICARE [Concomitant]
     Indication: PRODUCT USED FOR UNKNOWN INDICATION
     Dosage: 10 MILLIGRAM
     Route: 048
  16. SENIOR VITAMINS [Concomitant]
     Indication: PRODUCT USED FOR UNKNOWN INDICATION
     Dosage: 1 TABLET
     Route: 048
  17. ZOMETA [Concomitant]
     Indication: PRODUCT USED FOR UNKNOWN INDICATION
     Dosage: 4 MG / 100 ML
     Route: 041
  18. MULTIVITAMINS [Concomitant]
     Indication: PRODUCT USED FOR UNKNOWN INDICATION
     Route: 065
  19. PROTONIX [Concomitant]
     Indication: PRODUCT USED FOR UNKNOWN INDICATION
     Route: 065
  20. MS CONTIN [Concomitant]
     Indication: PRODUCT USED FOR UNKNOWN INDICATION
     Dosage: 60 MILLIGRAM
     Route: 048
  21. GABAPENTIN [Concomitant]
     Indication: PRODUCT USED FOR UNKNOWN INDICATION
     Dosage: 1200 MILLIGRAM
     Route: 065
  22. GABAPENTIN [Concomitant]
     Dosage: 300 MILLIGRAM
     Route: 065
  23. VITAMIN K [Concomitant]
     Indication: INTERNATIONAL NORMALISED RATIO INCREASED
     Route: 065
     Dates: start: 201304

REACTIONS (7)
  - Septic shock [Recovered/Resolved]
  - Haemophilus sepsis [Recovered/Resolved]
  - Febrile neutropenia [Recovering/Resolving]
  - Haemoptysis [Recovered/Resolved]
  - International normalised ratio increased [Unknown]
  - Pancytopenia [Unknown]
  - Renal failure acute [Unknown]
